FAERS Safety Report 13419763 (Version 6)
Quarter: 2018Q1

REPORT INFORMATION
  Report Type: Spontaneous
  Country: US (occurrence: US)
  Receive Date: 20170407
  Receipt Date: 20180228
  Transmission Date: 20180508
  Serious: Yes (Other)
  Sender: FDA-Public Use
  Company Number: US-PFIZER INC-2017147677

PATIENT
  Age: 72 Year
  Sex: Female

DRUGS (1)
  1. XELJANZ XR [Suspect]
     Active Substance: TOFACITINIB CITRATE
     Dosage: 11 MG, UNK
     Dates: start: 201503

REACTIONS (10)
  - Fall [Unknown]
  - Asthenia [Unknown]
  - Cough [Unknown]
  - Influenza [Unknown]
  - Respiratory tract congestion [Unknown]
  - Upper respiratory tract infection [Unknown]
  - Dizziness [Unknown]
  - Back pain [Not Recovered/Not Resolved]
  - Spinal fracture [Unknown]
  - Muscle spasms [Unknown]
